FAERS Safety Report 13123958 (Version 1)
Quarter: 2017Q1

REPORT INFORMATION
  Report Type: Report from Study
  Country: None (occurrence: CA)
  Receive Date: 20170118
  Receipt Date: 20170118
  Transmission Date: 20170428
  Serious: Yes (Hospitalization, Other)
  Sender: FDA-Public Use
  Company Number: CA-ABBVIE-16K-028-1724130-00

PATIENT
  Age: 17 Year
  Sex: Female
  Weight: 79.5 kg

DRUGS (5)
  1. HUMIRA [Suspect]
     Active Substance: ADALIMUMAB
     Dosage: INDUCTION THERAPY
     Route: 058
     Dates: start: 2016, end: 2016
  2. HUMIRA [Suspect]
     Active Substance: ADALIMUMAB
     Route: 058
     Dates: start: 20160923, end: 20160923
  3. HUMIRA [Suspect]
     Active Substance: ADALIMUMAB
     Indication: CROHN^S DISEASE
     Dosage: WEEKLY
     Route: 058
     Dates: start: 20160425, end: 20160425
  4. HUMIRA [Suspect]
     Active Substance: ADALIMUMAB
     Dosage: RE-INDUCTION WITH 160MG
     Route: 058
     Dates: start: 20160916, end: 20160916
  5. LANSOPRAZOLE. [Concomitant]
     Active Substance: LANSOPRAZOLE
     Indication: PRODUCT USED FOR UNKNOWN INDICATION

REACTIONS (11)
  - Pyrexia [Not Recovered/Not Resolved]
  - Post procedural complication [Not Recovered/Not Resolved]
  - Post procedural oedema [Not Recovered/Not Resolved]
  - Herpes zoster [Not Recovered/Not Resolved]
  - Ascites [Not Recovered/Not Resolved]
  - Postoperative abscess [Not Recovered/Not Resolved]
  - Ophthalmic herpes zoster [Not Recovered/Not Resolved]
  - Intestinal perforation [Recovering/Resolving]
  - Varicella [Not Recovered/Not Resolved]
  - Systemic inflammatory response syndrome [Not Recovered/Not Resolved]
  - Haemoglobin decreased [Unknown]

NARRATIVE: CASE EVENT DATE: 2016
